FAERS Safety Report 8500938-X (Version None)
Quarter: 2012Q3

REPORT INFORMATION
  Report Type: 
  Country: None (occurrence: None)
  Receive Date: 20120710
  Receipt Date: 20091210
  Transmission Date: 20120928
  Serious: Yes (Other)
  Sender: FDA-Public Use
  Company Number: BR-ROCHE-675430

PATIENT
  Sex: Female
  Weight: 70 kg

DRUGS (4)
  1. AMOXICILLIN [Concomitant]
     Indication: INFLUENZA
     Route: 048
  2. TAMIFLU [Suspect]
     Indication: H1N1 INFLUENZA
     Dosage: THERAPY STOPPED IN SEP 2009
     Route: 048
  3. FERROUS SULFATE TAB [Concomitant]
     Indication: VITAMIN SUPPLEMENTATION
     Route: 048
  4. SOTALOL HCL [Concomitant]
     Dosage: TRADE NAME: SORINE

REACTIONS (3)
  - DIZZINESS [None]
  - ASTHMA [None]
  - DYSPNOEA [None]
